APPROVED DRUG PRODUCT: EFAVIRENZ; EMTRICITABINE AND TENOFOVIR DISOPROXIL FUMARATE
Active Ingredient: EFAVIRENZ; EMTRICITABINE; TENOFOVIR DISOPROXIL FUMARATE
Strength: 600MG;200MG;300MG
Dosage Form/Route: TABLET;ORAL
Application: A201802 | Product #001
Applicant: CHARTWELL RX SCIENCES LLC
Approved: Oct 3, 2023 | RLD: No | RS: No | Type: DISCN